FAERS Safety Report 18235484 (Version 2)
Quarter: 2020Q3

REPORT INFORMATION
  Report Type: Spontaneous
  Country: ES (occurrence: ES)
  Receive Date: 20200905
  Receipt Date: 20200915
  Transmission Date: 20201103
  Serious: Yes (Hospitalization, Other)
  Sender: FDA-Public Use
  Company Number: ES-AUROBINDO-AUR-APL-2020-046359

PATIENT
  Age: 49 Year
  Sex: Male
  Weight: 65 kg

DRUGS (7)
  1. OXALIPLATIN CONCENTRATE FOR SOLUTION FOR INFUSION [Suspect]
     Active Substance: OXALIPLATIN
     Indication: GASTRIC CANCER
     Dosage: 148 MILLIGRAM, CYCLICAL (ONCE EVERY TWO WEEKS)
     Route: 042
     Dates: start: 20200624
  2. AVELUMAB [Concomitant]
     Active Substance: AVELUMAB
     Indication: GASTRIC CANCER
     Dosage: 650 MILLIGRAM, CYCLICAL (ONCE EVERY TWO WEEKS)
     Route: 042
     Dates: start: 20200806
  3. DOCETAXEL CONCENTRATE FOR SOLUTION FOR INFUSION [Suspect]
     Active Substance: DOCETAXEL
     Indication: GASTRIC CANCER
     Dosage: 87 MILLIGRAM, CYCLICAL (ONCE EVERY TWO WEEKS)
     Route: 042
     Dates: start: 20200624
  4. CALCIUM FOLINATE;FOLINIC ACID [Suspect]
     Active Substance: LEUCOVORIN CALCIUM
     Dosage: 700 MILLIGRAM, CYCLICAL (ONCE EVERY TWO WEEKS)
     Route: 042
     Dates: start: 20200624
  5. CALCIUM FOLINATE;FOLINIC ACID [Suspect]
     Active Substance: LEUCOVORIN CALCIUM
     Indication: GASTRIC CANCER
     Dosage: 700 MILLIGRAM, CYCLICAL (ONCE EVERY TWO WEEKS)
     Route: 042
     Dates: start: 20200623
  6. AVELUMAB [Concomitant]
     Active Substance: AVELUMAB
     Dosage: 650 MILLIGRAM, CYCLICAL (ONCE EVERY TWO WEEKS)
     Route: 042
     Dates: start: 20200624
  7. 5 FU [Suspect]
     Active Substance: FLUOROURACIL
     Indication: GASTRIC CANCER
     Dosage: 4550 MILLIGRAM, CYCLICAL (ONCE EVERY TWO WEEKS)
     Route: 042
     Dates: start: 20200624

REACTIONS (1)
  - Device related infection [Recovered/Resolved]

NARRATIVE: CASE EVENT DATE: 20200818
